FAERS Safety Report 7981688-5 (Version None)
Quarter: 2011Q4

REPORT INFORMATION
  Report Type: 
  Country: None (occurrence: None)
  Receive Date: 20111215
  Receipt Date: 20111209
  Transmission Date: 20120403
  Serious: Yes (Death, Other)
  Sender: FDA-Public Use
  Company Number: ES-SANOFI-AVENTIS-2011SA081151

PATIENT
  Age: 59 Year
  Sex: Male

DRUGS (6)
  1. FUROSEMIDE [Interacting]
     Route: 048
     Dates: start: 20070707, end: 20090225
  2. SUMIAL [Concomitant]
     Indication: HEPATIC CIRRHOSIS
     Route: 048
     Dates: start: 20020101, end: 20090305
  3. LACTULOSE [Concomitant]
     Indication: HEPATIC CIRRHOSIS
     Route: 048
     Dates: end: 20090303
  4. FUROSEMIDE [Suspect]
     Indication: HEPATIC CIRRHOSIS
     Route: 048
     Dates: start: 20090226, end: 20090301
  5. ISOSORBIDE MONONITRATE [Concomitant]
     Route: 048
     Dates: start: 20020101, end: 20090305
  6. ALDACTONE [Interacting]
     Indication: HEPATIC CIRRHOSIS
     Route: 048
     Dates: start: 20090226, end: 20090301

REACTIONS (3)
  - RENAL FAILURE ACUTE [None]
  - HEPATIC ENCEPHALOPATHY [None]
  - HYPERKALAEMIA [None]
